FAERS Safety Report 4477722-X (Version None)
Quarter: 2004Q4

REPORT INFORMATION
  Report Type: 
  Country: None (occurrence: None)
  Receive Date: 20041014
  Receipt Date: 20040930
  Transmission Date: 20050328
  Serious: Yes (Hospitalization)
  Sender: FDA-Public Use
  Company Number: 205526

PATIENT
  Age: 49 Year
  Sex: Female

DRUGS (2)
  1. AVONEX [Suspect]
     Indication: MULTIPLE SCLEROSIS RELAPSE
     Dosage: 30 MCG QW IM
     Route: 030
     Dates: start: 20001103
  2. LOXITANE [Concomitant]

REACTIONS (6)
  - BALANCE DISORDER [None]
  - BLOOD CHOLESTEROL INCREASED [None]
  - EMOTIONAL DISORDER [None]
  - NAUSEA [None]
  - PAIN IN EXTREMITY [None]
  - SCHIZOPHRENIFORM DISORDER [None]
